FAERS Safety Report 25705590 (Version 1)
Quarter: 2025Q3

REPORT INFORMATION
  Report Type: Spontaneous
  Country: SA (occurrence: SA)
  Receive Date: 20250820
  Receipt Date: 20250820
  Transmission Date: 20251021
  Serious: Yes (Hospitalization, Other)
  Sender: SCIEGEN PHARMACEUTICALS INC
  Company Number: SA-SCIEGENP-2025SCLIT00223

PATIENT
  Age: 31 Year
  Sex: Male

DRUGS (1)
  1. PREGABALIN [Suspect]
     Active Substance: PREGABALIN
     Indication: Product used for unknown indication
     Route: 065

REACTIONS (1)
  - Drug abuse [Unknown]
